FAERS Safety Report 4677412-4 (Version None)
Quarter: 2005Q2

REPORT INFORMATION
  Report Type: 
  Country: None (occurrence: None)
  Receive Date: 20050531
  Receipt Date: 20050523
  Transmission Date: 20051028
  Serious: Yes (Life-Threatening, Hospitalization)
  Sender: FDA-Public Use
  Company Number: PHFR2005GB01881

PATIENT
  Age: 49 Year
  Sex: Female
  Weight: 82 kg

DRUGS (3)
  1. DICLOFENAC [Suspect]
     Indication: POST PROCEDURAL PAIN
     Dosage: 50MG/DAY
     Route: 048
     Dates: start: 20050428, end: 20050503
  2. CLEXANE [Suspect]
     Indication: ANTICOAGULANT THERAPY
     Dosage: 20MG/DAY
     Route: 058
     Dates: start: 20050428, end: 20050503
  3. THYROXINE [Concomitant]
     Indication: HYPOTHYROIDISM
     Dosage: 500UG/DAY
     Route: 048
     Dates: start: 20020101

REACTIONS (2)
  - INTRA-ABDOMINAL HAEMORRHAGE [None]
  - PLATELET DISORDER [None]
